FAERS Safety Report 8276466-6 (Version None)
Quarter: 2012Q2

REPORT INFORMATION
  Report Type: 
  Country: None (occurrence: None)
  Receive Date: 20120412
  Receipt Date: 20120405
  Transmission Date: 20120825
  Serious: Yes (Disabling)
  Sender: FDA-Public Use
  Company Number: DE-SANOFI-AVENTIS-2012SA016157

PATIENT
  Sex: Female
  Weight: 72 kg

DRUGS (6)
  1. PHENPROCOUMON [Concomitant]
  2. PANTOPRAZOLE [Concomitant]
  3. MULTAQ [Suspect]
     Route: 048
     Dates: start: 20111117
  4. EZETIMIBE [Interacting]
     Route: 048
     Dates: start: 20050101, end: 20120314
  5. LEVOTHYROXINE SODIUM [Concomitant]
  6. ALENDRONIC ACID [Concomitant]

REACTIONS (3)
  - DRUG INTERACTION [None]
  - MYALGIA [None]
  - MOBILITY DECREASED [None]
